FAERS Safety Report 23914981 (Version 1)
Quarter: 2024Q2

REPORT INFORMATION
  Report Type: Spontaneous
  Country: US (occurrence: US)
  Receive Date: 20240529
  Receipt Date: 20240529
  Transmission Date: 20240716
  Serious: No
  Sender: FDA-Public Use
  Company Number: US-PERRIGO-24US001619

PATIENT
  Age: 48 Year
  Sex: Male
  Weight: 90.703 kg

DRUGS (3)
  1. MINOXIDIL [Suspect]
     Active Substance: MINOXIDIL
     Indication: Hair growth abnormal
     Dosage: ONE CAPFUL, BID
     Route: 061
     Dates: start: 20230601, end: 20230701
  2. HEAD AND SHOULDERS [Suspect]
     Active Substance: PYRITHIONE ZINC
     Indication: Rash
     Dosage: UNK
     Route: 065
  3. HEAD AND SHOULDERS [Suspect]
     Active Substance: PYRITHIONE ZINC
     Indication: Dry skin

REACTIONS (3)
  - Application site rash [Recovered/Resolved]
  - Application site dryness [Recovered/Resolved]
  - Incorrect dose administered [Recovered/Resolved]

NARRATIVE: CASE EVENT DATE: 20230601
